FAERS Safety Report 7931285-2 (Version None)
Quarter: 2011Q4

REPORT INFORMATION
  Report Type: 
  Country: None (occurrence: None)
  Receive Date: 20111121
  Receipt Date: 20110820
  Transmission Date: 20120403
  Serious: No
  Sender: FDA-Public Use
  Company Number: US-BAYER-2011-080071

PATIENT
  Sex: Male

DRUGS (5)
  1. VICODIN [Concomitant]
  2. DIURETICS [Interacting]
  3. ALEVE (CAPLET) [Suspect]
     Route: 048
  4. CELEBREX [Concomitant]
  5. ANTIBIOTICS [Concomitant]

REACTIONS (2)
  - PALLOR [None]
  - COLD SWEAT [None]
